FAERS Safety Report 23327608 (Version 4)
Quarter: 2024Q1

REPORT INFORMATION
  Report Type: Report from Study
  Country: MX (occurrence: MX)
  Receive Date: 20231221
  Receipt Date: 20240213
  Transmission Date: 20240410
  Serious: Yes (Hospitalization)
  Sender: FDA-Public Use
  Company Number: MX-002147023-NVSC2023MX098824

PATIENT
  Sex: Female
  Weight: 49 kg

DRUGS (2)
  1. GILENYA [Suspect]
     Active Substance: FINGOLIMOD HYDROCHLORIDE
     Indication: Multiple sclerosis
     Dosage: 0.5 MG, QD
     Route: 048
     Dates: start: 202211
  2. GILENYA [Suspect]
     Active Substance: FINGOLIMOD HYDROCHLORIDE
     Dosage: 1 DOSAGE FORM (0.5 MG), QD
     Route: 048
     Dates: start: 202212

REACTIONS (12)
  - Urinary tract infection [Unknown]
  - Weight gain poor [Not Recovered/Not Resolved]
  - Groin pain [Unknown]
  - Gait inability [Unknown]
  - Fall [Unknown]
  - Asthenia [Unknown]
  - Pain in extremity [Unknown]
  - Insomnia [Recovering/Resolving]
  - Dysuria [Not Recovered/Not Resolved]
  - Hypoaesthesia [Not Recovered/Not Resolved]
  - Pharyngitis [Not Recovered/Not Resolved]
  - Arthralgia [Not Recovered/Not Resolved]

NARRATIVE: CASE EVENT DATE: 20220101
